FAERS Safety Report 12480671 (Version 2)
Quarter: 2016Q4

REPORT INFORMATION
  Report Type: Spontaneous
  Country: US (occurrence: US)
  Receive Date: 20160620
  Receipt Date: 20161110
  Transmission Date: 20170207
  Serious: No
  Sender: FDA-Public Use
  Company Number: US-GLAXOSMITHKLINE-US2016086639

PATIENT
  Sex: Female

DRUGS (2)
  1. BUPROPION TABLET [Suspect]
     Active Substance: BUPROPION
     Indication: SMOKING CESSATION THERAPY
     Route: 048
  2. NICOTINE TRANSDERMAL PATCH [Concomitant]
     Active Substance: NICOTINE

REACTIONS (2)
  - Swelling face [Recovered/Resolved]
  - Off label use [Unknown]
